FAERS Safety Report 9344062 (Version 1)
Quarter: 2013Q2

REPORT INFORMATION
  Report Type: Spontaneous
  Country: US (occurrence: US)
  Receive Date: 20130612
  Receipt Date: 20130612
  Transmission Date: 20140414
  Serious: Yes (Hospitalization, Other)
  Sender: FDA-Public Use
  Company Number: US-ASTRAZENECA-2013SE40776

PATIENT
  Age: 62 Year
  Sex: Male
  Weight: 156.5 kg

DRUGS (7)
  1. OMEPRAZOLE [Suspect]
     Indication: GASTROOESOPHAGEAL REFLUX DISEASE
     Route: 048
  2. CRESTOR [Suspect]
     Indication: BLOOD CHOLESTEROL ABNORMAL
     Dosage: ONCE DAILY AT NIGHT
     Route: 048
     Dates: start: 20130526, end: 20130530
  3. CRESTOR [Suspect]
     Indication: BLOOD CHOLESTEROL ABNORMAL
     Dosage: DAILY
     Route: 048
     Dates: start: 20130531, end: 20130601
  4. NITROGLYCERIN [Suspect]
     Dosage: TWICE
     Route: 065
  5. RAMIPRIL [Concomitant]
     Indication: BLOOD PRESSURE ABNORMAL
     Route: 048
  6. MULTIVITAMIN [Concomitant]
     Route: 048
  7. FISH OIL [Concomitant]
     Dosage: DAILY

REACTIONS (5)
  - Chest pain [Unknown]
  - Haemorrhage [Recovered/Resolved]
  - Cough [Unknown]
  - Headache [Recovered/Resolved]
  - Intentional drug misuse [Recovered/Resolved]
